FAERS Safety Report 5723072-0 (Version None)
Quarter: 2008Q2

REPORT INFORMATION
  Report Type: 
  Country: None (occurrence: None)
  Receive Date: 20080428
  Receipt Date: 20080428
  Transmission Date: 20081010
  Serious: Yes (Hospitalization, Other)
  Sender: FDA-Public Use
  Company Number: None

PATIENT
  Sex: Male
  Weight: 115 kg

DRUGS (2)
  1. CISPLATIN [Suspect]
     Dosage: 398 MG
     Dates: start: 20080414
  2. ERBITUX [Suspect]
     Dosage: 2872 MG
     Dates: start: 20080414

REACTIONS (4)
  - CHILLS [None]
  - MUCOSAL INFLAMMATION [None]
  - PYREXIA [None]
  - THROAT TIGHTNESS [None]
